FAERS Safety Report 11039387 (Version 2)
Quarter: 2015Q3

REPORT INFORMATION
  Report Type: Spontaneous
  Country: US (occurrence: US)
  Receive Date: 20150416
  Receipt Date: 20150723
  Transmission Date: 20151125
  Serious: Yes (Other)
  Sender: FDA-Public Use
  Company Number: US-TEVA-555403USA

PATIENT
  Sex: Female
  Weight: 80.36 kg

DRUGS (1)
  1. PARAGARD T 380A [Suspect]
     Active Substance: COPPER
     Indication: CONTRACEPTION
     Route: 015
     Dates: start: 20150403, end: 20150406

REACTIONS (2)
  - Uterine dilation and evacuation [Unknown]
  - Pregnancy on contraceptive [Unknown]
